FAERS Safety Report 18756046 (Version 2)
Quarter: 2021Q1

REPORT INFORMATION
  Report Type: Spontaneous
  Country: US (occurrence: US)
  Receive Date: 20210119
  Receipt Date: 20210122
  Transmission Date: 20210419
  Serious: Yes (Hospitalization, Other)
  Sender: FDA-Public Use
  Company Number: US-PFIZER INC-2021020782

PATIENT
  Age: 41 Year
  Sex: Male

DRUGS (7)
  1. DROPERIDOL. [Suspect]
     Active Substance: DROPERIDOL
     Indication: NAUSEA
     Dosage: 2.5 MG
     Route: 030
  2. DROPERIDOL. [Suspect]
     Active Substance: DROPERIDOL
     Indication: VOMITING
  3. TERBUTALINE [Concomitant]
     Active Substance: TERBUTALINE
     Dosage: UNK
  4. BECLOMETHASONE [Concomitant]
     Active Substance: BECLOMETHASONE
     Dosage: UNK
  5. THEOPHYLLINE [Concomitant]
     Active Substance: THEOPHYLLINE ANHYDROUS
     Dosage: UNK
  6. ALUPENT [Concomitant]
     Active Substance: METAPROTERENOL SULFATE
     Dosage: UNK
  7. PREDNISONE. [Concomitant]
     Active Substance: PREDNISONE
     Dosage: UNK

REACTIONS (1)
  - Torsade de pointes [Unknown]
